FAERS Safety Report 8324709-2 (Version None)
Quarter: 2012Q1

REPORT INFORMATION
  Report Type: 
  Country: None (occurrence: None)
  Receive Date: 20120315
  Receipt Date: 20110607
  Transmission Date: 20120608
  Serious: No
  Sender: FDA-Public Use
  Company Number: PHHY2011US29856

PATIENT
  Sex: Female

DRUGS (1)
  1. GILENYA [Suspect]
     Indication: RELAPSING-REMITTING MULTIPLE SCLEROSIS
     Dosage: 0.5 MG QD, ORAL, 0.5 MG QOD, ORAL
     Route: 048
     Dates: start: 20110315

REACTIONS (2)
  - SINUSITIS [None]
  - INCORRECT DOSE ADMINISTERED [None]
